FAERS Safety Report 18624599 (Version 1)
Quarter: 2020Q4

REPORT INFORMATION
  Report Type: Spontaneous
  Country: US (occurrence: US)
  Receive Date: 20201216
  Receipt Date: 20201216
  Transmission Date: 20210114
  Serious: No
  Sender: FDA-Public Use
  Company Number: US-B.BRAUN MEDICAL INC.-2103060

PATIENT
  Age: 32 Year
  Sex: Female

DRUGS (1)
  1. CLOROTEKAL [Suspect]
     Active Substance: CHLOROPROCAINE HYDROCHLORIDE
     Indication: SPINAL ANAESTHESIA
     Route: 042
     Dates: start: 20201118

REACTIONS (1)
  - Drug ineffective [None]

NARRATIVE: CASE EVENT DATE: 20201118
